FAERS Safety Report 8050876-4 (Version None)
Quarter: 2012Q1

REPORT INFORMATION
  Report Type: 
  Country: None (occurrence: None)
  Receive Date: 20120117
  Receipt Date: 20120109
  Transmission Date: 20120608
  Serious: Yes (Other)
  Sender: FDA-Public Use
  Company Number: PHHY2012BR002509

PATIENT
  Sex: Female

DRUGS (3)
  1. CYMBALTA [Concomitant]
     Indication: FIBROMYALGIA
  2. CYMBALTA [Concomitant]
     Indication: DEPRESSION
     Dosage: 60 MG, A DAY
     Route: 048
  3. DIOVAN HCT [Suspect]
     Indication: HYPERTENSION
     Dosage: 1 DF (160/12.5 MG), A DAY
     Dates: start: 20050101, end: 20101201

REACTIONS (1)
  - MYASTHENIA GRAVIS [None]
